FAERS Safety Report 9368739 (Version 3)
Quarter: 2013Q3

REPORT INFORMATION
  Report Type: Report from Study
  Country: US (occurrence: US)
  Receive Date: 20130626
  Receipt Date: 20130722
  Transmission Date: 20140515
  Serious: Yes (Death)
  Sender: FDA-Public Use
  Company Number: US-ROCHE-1241307

PATIENT
  Sex: Male
  Weight: 110.32 kg

DRUGS (5)
  1. PEGASYS [Suspect]
     Indication: HEPATITIS C
     Route: 065
     Dates: start: 20130510, end: 20130531
  2. COPEGUS [Suspect]
     Indication: HEPATITIS C
     Route: 065
  3. NEURONTIN (UNITED STATES) [Concomitant]
     Route: 065
     Dates: start: 20130527
  4. CYMBALTA [Concomitant]
     Dosage: EVERY DAY
     Route: 048
     Dates: start: 20130527
  5. PERCOCET [Concomitant]
     Dosage: 5-10 MG EVERY 4 HOURS
     Route: 065
     Dates: start: 20130528

REACTIONS (15)
  - Death [Fatal]
  - Pyrexia [Unknown]
  - Pain [Unknown]
  - Back pain [Unknown]
  - Fatigue [Unknown]
  - Asthenia [Unknown]
  - Dyspnoea [Unknown]
  - Aspartate aminotransferase increased [Not Recovered/Not Resolved]
  - Alanine aminotransferase increased [Not Recovered/Not Resolved]
  - Proteinuria [Unknown]
  - Hepatomegaly [Unknown]
  - Hepatic steatosis [Unknown]
  - Blood albumin decreased [Unknown]
  - Aspartate aminotransferase decreased [Unknown]
  - Myalgia [Unknown]
